FAERS Safety Report 11809026 (Version 1)
Quarter: 2015Q4

REPORT INFORMATION
  Report Type: Spontaneous
  Country: US (occurrence: US)
  Receive Date: 20151207
  Receipt Date: 20151207
  Transmission Date: 20160305
  Serious: Yes (Other)
  Sender: FDA-Public Use
  Company Number: US-BAYER-2015-477246

PATIENT
  Age: 48 Year
  Sex: Female
  Weight: 108.84 kg

DRUGS (6)
  1. ALKA-SELTZER PLUS SEVERE SINUS COLD AND COUGH LIQUID GELS [Suspect]
     Active Substance: ACETAMINOPHEN\DEXTROMETHORPHAN HYDROBROMIDE\GUAIFENESIN\PHENYLEPHRINE HYDROCHLORIDE
     Indication: HEADACHE
  2. ESTRADIOL. [Concomitant]
     Active Substance: ESTRADIOL
     Dosage: UNK
  3. ALKA-SELTZER PLUS SEVERE SINUS COLD AND COUGH LIQUID GELS [Suspect]
     Active Substance: ACETAMINOPHEN\DEXTROMETHORPHAN HYDROBROMIDE\GUAIFENESIN\PHENYLEPHRINE HYDROCHLORIDE
     Indication: NASAL CONGESTION
     Dosage: 2 DF, EVERY 4 HOURS
     Route: 048
     Dates: start: 20151124
  4. BAYER LOW DOSE [Suspect]
     Active Substance: ASPIRIN
     Dosage: 1 DF, QOD
     Route: 048
     Dates: start: 2005
  5. LEVOTHYROXINE. [Concomitant]
     Active Substance: LEVOTHYROXINE
  6. DAILY VITAMINS [Concomitant]
     Indication: VITAMIN SUPPLEMENTATION

REACTIONS (7)
  - Drug ineffective [None]
  - Fatigue [Recovered/Resolved]
  - Headache [None]
  - Product use issue [None]
  - Thyroid disorder [Not Recovered/Not Resolved]
  - Somnolence [None]
  - Nasal congestion [None]

NARRATIVE: CASE EVENT DATE: 2005
